FAERS Safety Report 10206524 (Version 5)
Quarter: 2015Q1

REPORT INFORMATION
  Report Type: Spontaneous
  Country: US (occurrence: US)
  Receive Date: 20140530
  Receipt Date: 20150311
  Transmission Date: 20150720
  Serious: Yes (Hospitalization, Other)
  Sender: FDA-Public Use
  Company Number: US-GLAXOSMITHKLINE-A1023783A

PATIENT
  Sex: Female

DRUGS (9)
  1. FLOLAN [Suspect]
     Active Substance: EPOPROSTENOL SODIUM
     Indication: COR PULMONALE CHRONIC
     Dosage: 58 NG/KG/MIN CO, PUMP RATE 81 ML/DAY, CONCENTRATION 75, 000 NG/ML, 1.5 MG VIAL
     Route: 042
     Dates: start: 20080314
  2. FLOLAN [Suspect]
     Active Substance: EPOPROSTENOL SODIUM
     Dosage: 58 DF, UNK
  3. FLOLAN [Suspect]
     Active Substance: EPOPROSTENOL SODIUM
     Dosage: UNK
     Dates: start: 20080314
  4. FLOLAN [Suspect]
     Active Substance: EPOPROSTENOL SODIUM
     Dosage: 50 NG/KG/MIN, CO
  5. FLOLAN [Suspect]
     Active Substance: EPOPROSTENOL SODIUM
     Dosage: UNK
     Dates: start: 20080314
  6. FLOLAN [Suspect]
     Active Substance: EPOPROSTENOL SODIUM
     Dosage: UNK
     Dates: start: 20080314
  7. ADHESIVE TAPE [Suspect]
     Active Substance: ADHESIVE TAPE
     Indication: PRODUCT USED FOR UNKNOWN INDICATION
  8. FLOLAN [Suspect]
     Active Substance: EPOPROSTENOL SODIUM
     Dosage: 58 NG/KG/MIN, CONCENTRATION 75,000 NG/ML, PUMP RATE 81 ML/DAY, VIAL STRENGTH 1.5 MG,CO
     Route: 042
  9. COUMADIN [Concomitant]
     Active Substance: WARFARIN SODIUM

REACTIONS (5)
  - Pulmonary arterial hypertension [Unknown]
  - Application site dryness [Unknown]
  - Application site irritation [Recovering/Resolving]
  - Skin irritation [Unknown]
  - Respiratory failure [Not Recovered/Not Resolved]
